FAERS Safety Report 4841299-7 (Version None)
Quarter: 2005Q4

REPORT INFORMATION
  Report Type: 
  Country: None (occurrence: None)
  Receive Date: 20051130
  Receipt Date: 20051124
  Transmission Date: 20060501
  Serious: Yes (Other)
  Sender: FDA-Public Use
  Company Number: CA-GLAXOSMITHKLINE-A0583719A

PATIENT
  Age: 3 Year
  Sex: Male

DRUGS (1)
  1. AQUAFRESH KIDS TOOTHPASTE TUBE [Suspect]
     Dates: end: 20051122

REACTIONS (2)
  - CONVULSION [None]
  - VOMITING [None]
